FAERS Safety Report 10092064 (Version 2)
Quarter: 2014Q2

REPORT INFORMATION
  Report Type: Spontaneous
  Country: US (occurrence: US)
  Receive Date: 20140421
  Receipt Date: 20140421
  Transmission Date: 20141212
  Serious: Yes (Other)
  Sender: FDA-Public Use
  Company Number: US-GILEAD-2013-0072030

PATIENT
  Age: 69 Year
  Sex: Female

DRUGS (9)
  1. LETAIRIS [Suspect]
     Indication: PULMONARY HYPERTENSION
     Dosage: 5 MG, UNK
     Route: 048
     Dates: start: 20130201, end: 20130226
  2. LETAIRIS [Suspect]
     Indication: CONNECTIVE TISSUE DISORDER
  3. REVATIO [Concomitant]
  4. COUMADIN                           /00014802/ [Concomitant]
  5. LASIX                              /00032601/ [Concomitant]
  6. LEVOTHROID [Concomitant]
  7. VERAPAMIL [Concomitant]
  8. PLAQUENIL                          /00072602/ [Concomitant]
  9. DULERA [Concomitant]

REACTIONS (1)
  - Oedema peripheral [Unknown]
